FAERS Safety Report 10708852 (Version 1)
Quarter: 2015Q1

REPORT INFORMATION
  Report Type: Spontaneous
  Country: US (occurrence: US)
  Receive Date: 20150113
  Receipt Date: 20150113
  Transmission Date: 20150721
  Serious: Yes (Death, Hospitalization)
  Sender: FDA-Public Use
  Company Number: PHHY2015US001657

PATIENT
  Age: 69 Year
  Sex: Male

DRUGS (8)
  1. PENTOSTATIN. [Suspect]
     Active Substance: PENTOSTATIN
     Indication: GRAFT VERSUS HOST DISEASE
     Dosage: 1.5 MG/M2, UNK
     Route: 065
  2. FLUDARABINE [Concomitant]
     Active Substance: FLUDARABINE PHOSPHATE
     Indication: ACUTE MYELOMONOCYTIC LEUKAEMIA
     Dosage: 40 MG/M2 FOR 4 DAYS
     Route: 065
  3. BUSULFAN [Concomitant]
     Active Substance: BUSULFAN
     Indication: ACUTE MYELOMONOCYTIC LEUKAEMIA
     Route: 065
  4. MYCOPHENOLATE MOFETIL. [Suspect]
     Active Substance: MYCOPHENOLATE MOFETIL
     Indication: GRAFT VERSUS HOST DISEASE
     Route: 065
  5. METHYLPREDNISOLONE. [Suspect]
     Active Substance: METHYLPREDNISOLONE
     Indication: GRAFT VERSUS HOST DISEASE
     Dosage: 2 MG/KG, UNK
     Route: 065
  6. TACROLIMUS. [Suspect]
     Active Substance: TACROLIMUS
     Indication: IMMUNOSUPPRESSION
     Route: 065
  7. PREDNISONE. [Suspect]
     Active Substance: PREDNISONE
     Indication: GRAFT VERSUS HOST DISEASE
     Route: 065
  8. CYCLOPHOSPHAMIDE. [Suspect]
     Active Substance: CYCLOPHOSPHAMIDE
     Indication: IMMUNOSUPPRESSION
     Dosage: 50 MG/KG, UNK
     Route: 065

REACTIONS (3)
  - Dyspraxia [Fatal]
  - Progressive multifocal leukoencephalopathy [Fatal]
  - Aphasia [Fatal]
